FAERS Safety Report 6551555-2 (Version None)
Quarter: 2010Q1

REPORT INFORMATION
  Report Type: 
  Country: None (occurrence: None)
  Receive Date: 20100126
  Receipt Date: 20100126
  Transmission Date: 20100710
  Serious: Yes (Hospitalization)
  Sender: FDA-Public Use
  Company Number: PHHO2008HU12794

PATIENT
  Sex: Female
  Weight: 48 kg

DRUGS (2)
  1. PLACEBO COMP-PLA+ [Suspect]
     Indication: ACUTE MYOCARDIAL INFARCTION
     Dosage: UNK
     Route: 048
     Dates: start: 20080212
  2. ALISKIREN [Suspect]
     Indication: ACUTE MYOCARDIAL INFARCTION
     Dosage: UNK
     Route: 048
     Dates: start: 20081022, end: 20081119

REACTIONS (7)
  - CORONARY ARTERY STENOSIS [None]
  - DYSPNOEA [None]
  - LUNG NEOPLASM [None]
  - PERCUTANEOUS CORONARY INTERVENTION [None]
  - STENT PLACEMENT [None]
  - TUMOUR EXCISION [None]
  - WEGENER'S GRANULOMATOSIS [None]
